FAERS Safety Report 22645636 (Version 1)
Quarter: 2023Q2

REPORT INFORMATION
  Report Type: Spontaneous
  Country: US (occurrence: None)
  Receive Date: 20230623
  Receipt Date: 20230623
  Transmission Date: 20230722
  Serious: No
  Sender: FDA-Public Use
  Company Number: None

PATIENT
  Age: 70 Year
  Weight: 122 kg

DRUGS (14)
  1. KISQALI [Suspect]
     Active Substance: RIBOCICLIB
     Indication: Breast cancer female
     Dosage: FREQUENCY : DAILY;?
     Route: 048
  2. LETROZOLE [Concomitant]
     Active Substance: LETROZOLE
  3. ALPRAZOLAM [Concomitant]
  4. CURCUMIN [Concomitant]
  5. CRANBERRY [Concomitant]
     Active Substance: CRANBERRY
  6. PROBIOTICS NOS [Concomitant]
     Active Substance: PROBIOTICS NOS
  7. VITAMIN C [Concomitant]
  8. MUTLIVITAMIN [Concomitant]
  9. ALOE VERA LEAF [Concomitant]
     Active Substance: ALOE VERA LEAF
  10. UNSPECIFIED INGREDIENT [Concomitant]
     Active Substance: UNSPECIFIED INGREDIENT
  11. ALLERGY MEDICINE [Concomitant]
     Active Substance: DIPHENHYDRAMINE HYDROCHLORIDE
  12. HERBALS [Concomitant]
     Active Substance: HERBALS
  13. PAMIDRONIC [Concomitant]
  14. XGEVA [Concomitant]
     Active Substance: DENOSUMAB

REACTIONS (10)
  - Fatigue [None]
  - Cardiac flutter [None]
  - Pruritus [None]
  - Affective disorder [None]
  - Trichorrhexis [None]
  - Onychoclasis [None]
  - Dry eye [None]
  - Irritability [None]
  - Renal impairment [None]
  - Full blood count decreased [None]
